FAERS Safety Report 21663558 (Version 2)
Quarter: 2022Q4

REPORT INFORMATION
  Report Type: Spontaneous
  Country: JP (occurrence: JP)
  Receive Date: 20221130
  Receipt Date: 20221208
  Transmission Date: 20230112
  Serious: Yes (Hospitalization)
  Sender: FDA-Public Use
  Company Number: JP-TAIHO-2022-002633

PATIENT
  Age: 78 Year
  Sex: Male

DRUGS (1)
  1. LONSURF [Suspect]
     Active Substance: TIPIRACIL HYDROCHLORIDE\TRIFLURIDINE
     Indication: Colon cancer
     Dosage: CYCLE UNKNOWN
     Route: 048

REACTIONS (6)
  - Malaise [Unknown]
  - Pyrexia [Unknown]
  - White blood cell count increased [Unknown]
  - Urinary incontinence [Unknown]
  - C-reactive protein increased [Unknown]
  - Off label use [Unknown]
